FAERS Safety Report 10023042 (Version 2)
Quarter: 2014Q2

REPORT INFORMATION
  Report Type: Report from Study
  Country: JP (occurrence: JP)
  Receive Date: 20140319
  Receipt Date: 20140522
  Transmission Date: 20141212
  Serious: Yes (Hospitalization)
  Sender: FDA-Public Use
  Company Number: JP-ABBVIE-14P-087-1211481-00

PATIENT
  Age: 51 Year
  Sex: Male
  Weight: 49.8 kg

DRUGS (12)
  1. HUMIRA [Suspect]
     Indication: CROHN^S DISEASE
     Route: 058
     Dates: start: 20120703, end: 20120703
  2. HUMIRA [Suspect]
     Route: 058
     Dates: start: 20120718, end: 20120718
  3. HUMIRA [Suspect]
     Route: 058
     Dates: start: 20120803, end: 20130830
  4. MESALAZINE [Concomitant]
     Indication: CROHN^S DISEASE
     Route: 048
  5. CLOSTRIDIUM BUTYRICUM [Concomitant]
     Indication: CROHN^S DISEASE
     Route: 048
  6. NATURAL ALUMINUM SILICATE [Concomitant]
     Indication: CROHN^S DISEASE
     Route: 048
     Dates: end: 20120718
  7. RABEPRAZOLE SODIUM [Concomitant]
     Indication: PRODUCT USED FOR UNKNOWN INDICATION
     Route: 048
     Dates: end: 20120830
  8. CERNITIN POLLEN EXTRACT [Concomitant]
     Indication: PRODUCT USED FOR UNKNOWN INDICATION
     Route: 048
     Dates: end: 20120724
  9. TAMSULOSIN HYDROCHLORIDE [Concomitant]
     Indication: PRODUCT USED FOR UNKNOWN INDICATION
     Route: 048
  10. ESOMEPRAZOLE MAGNESIUM [Concomitant]
     Indication: PRODUCT USED FOR UNKNOWN INDICATION
     Route: 048
     Dates: start: 20130726
  11. LAFUTIDINE [Concomitant]
     Indication: PROPHYLAXIS AGAINST GASTROINTESTINAL ULCER
     Dates: start: 20130820, end: 20130927
  12. NATURAL ALUMINUM SILICATE [Concomitant]
     Indication: PRODUCT USED FOR UNKNOWN INDICATION
     Dates: end: 20130718

REACTIONS (3)
  - Allergic granulomatous angiitis [Recovering/Resolving]
  - Sepsis [Recovered/Resolved]
  - Gastrooesophageal reflux disease [Recovered/Resolved]
